FAERS Safety Report 14554588 (Version 8)
Quarter: 2020Q2

REPORT INFORMATION
  Report Type: Spontaneous
  Country: US (occurrence: US)
  Receive Date: 20180220
  Receipt Date: 20200612
  Transmission Date: 20200713
  Serious: Yes (Hospitalization, Other)
  Sender: FDA-Public Use
  Company Number: US-PFIZER INC-2017380233

PATIENT
  Age: 59 Year
  Sex: Female

DRUGS (1)
  1. LYRICA [Suspect]
     Active Substance: PREGABALIN
     Dosage: UNK

REACTIONS (12)
  - Pneumonia [Unknown]
  - Abdominal discomfort [Unknown]
  - Cough [Unknown]
  - Pneumothorax [Unknown]
  - Hiatus hernia [Unknown]
  - Pneumonia aspiration [Unknown]
  - Intentional product use issue [Unknown]
  - Nerve compression [Unknown]
  - Dyspnoea [Unknown]
  - Malaise [Unknown]
  - Stress [Unknown]
  - Back disorder [Unknown]

NARRATIVE: CASE EVENT DATE: 202001
